FAERS Safety Report 5801770-8 (Version None)
Quarter: 2008Q3

REPORT INFORMATION
  Report Type: 
  Country: None (occurrence: None)
  Receive Date: 20080707
  Receipt Date: 20080625
  Transmission Date: 20090109
  Serious: Yes (Other)
  Sender: FDA-Public Use
  Company Number: JP-AVENTIS-200811981JP

PATIENT
  Age: 63 Year
  Sex: Male

DRUGS (5)
  1. LANTUS [Suspect]
     Indication: TYPE 2 DIABETES MELLITUS
     Dosage: DOSE: 4 UNITS/DAY
     Route: 058
     Dates: start: 20080617, end: 20080620
  2. OPTICLIK (INSULIN INJECTION PEN) [Suspect]
     Indication: TYPE 2 DIABETES MELLITUS
  3. NOVORAPID [Concomitant]
     Indication: TYPE 2 DIABETES MELLITUS
  4. UNKNOWN DRUG [Concomitant]
     Indication: HYPERTENSION
     Route: 048
  5. UNKNOWN DRUG [Concomitant]
     Route: 048

REACTIONS (3)
  - BLISTER [None]
  - OEDEMA PERIPHERAL [None]
  - SKIN EROSION [None]
